FAERS Safety Report 4294703-X (Version None)
Quarter: 2004Q1

REPORT INFORMATION
  Report Type: 
  Country: None (occurrence: None)
  Receive Date: 20040213
  Receipt Date: 20040107
  Transmission Date: 20041129
  Serious: Yes (Death)
  Sender: FDA-Public Use
  Company Number: JP-ROCHE-355171

PATIENT
  Age: 1 Year
  Sex: Female

DRUGS (10)
  1. TORSEMIDE [Suspect]
     Route: 048
     Dates: start: 20010114, end: 20010329
  2. TORSEMIDE [Suspect]
     Route: 048
     Dates: start: 20010330, end: 20010417
  3. TORSEMIDE [Suspect]
     Route: 048
     Dates: start: 20010418, end: 20010510
  4. TORSEMIDE [Suspect]
     Route: 048
     Dates: start: 20010510, end: 20011007
  5. ENALAPRIL MALEATE [Suspect]
     Indication: CARDIAC FAILURE
     Route: 048
  6. ALDACTONE [Concomitant]
  7. ASPARA K [Concomitant]
  8. DIGOSIN [Concomitant]
  9. PHENOBAL [Concomitant]
  10. DEPAKENE [Concomitant]

REACTIONS (4)
  - DRUG INTERACTION [None]
  - MYOCARDIAL FIBROSIS [None]
  - RENAL FAILURE [None]
  - SEPSIS [None]
